FAERS Safety Report 5755478-8 (Version None)
Quarter: 2008Q2

REPORT INFORMATION
  Report Type: 
  Country: None (occurrence: None)
  Receive Date: 20080602
  Receipt Date: 20080526
  Transmission Date: 20081010
  Serious: Yes (Other)
  Sender: FDA-Public Use
  Company Number: AT-ASTRAZENECA-2008PK00891

PATIENT
  Age: 29640 Day
  Sex: Female
  Weight: 70 kg

DRUGS (4)
  1. ARIMIDEX [Suspect]
     Indication: BREAST CANCER FEMALE
     Route: 048
     Dates: start: 20050318, end: 20060627
  2. PLAVIX [Concomitant]
     Indication: CORONARY ARTERY DISEASE
     Route: 048
     Dates: start: 20030301
  3. FOSICOMB [Concomitant]
     Indication: OSTEOPOROSIS
     Route: 048
     Dates: start: 20051201
  4. SIMVASTATIN [Concomitant]
     Indication: HYPERCHOLESTEROLAEMIA
     Route: 048
     Dates: start: 20050401

REACTIONS (1)
  - GENERAL PHYSICAL HEALTH DETERIORATION [None]
